FAERS Safety Report 4345345-9 (Version None)
Quarter: 2004Q2

REPORT INFORMATION
  Report Type: 
  Country: None (occurrence: None)
  Receive Date: 20040420
  Receipt Date: 20030711
  Transmission Date: 20050107
  Serious: Yes (Other)
  Sender: FDA-Public Use
  Company Number: 200312115BCC

PATIENT
  Age: 56 Year
  Sex: Female
  Weight: 90.7194 kg

DRUGS (11)
  1. MYCELEX-7 [Suspect]
     Indication: PRURITUS
     Dosage: QD, VAGINAL
     Route: 067
     Dates: start: 20030618
  2. MYCELEX-7 [Suspect]
     Indication: VAGINAL ERYTHEMA
     Dosage: QD, VAGINAL
     Route: 067
     Dates: start: 20030618
  3. MYCELEX-7 [Suspect]
     Indication: VAGINAL MYCOSIS
     Dosage: QD, VAGINAL
     Route: 067
     Dates: start: 20030618
  4. DIGITEK [Concomitant]
  5. ENALAPRIL MALEATE [Concomitant]
  6. COREG [Concomitant]
  7. ASPIRIN [Concomitant]
  8. LASIX [Concomitant]
  9. POTASSIUM CHLORIDE [Concomitant]
  10. INSULIN HUMULIN 50/50 [Concomitant]
  11. ZOCOR [Concomitant]

REACTIONS (1)
  - METRORRHAGIA [None]
